FAERS Safety Report 20358936 (Version 2)
Quarter: 2022Q1

REPORT INFORMATION
  Report Type: Spontaneous
  Country: US (occurrence: US)
  Receive Date: 20220120
  Receipt Date: 20220324
  Transmission Date: 20220423
  Serious: Yes (Hospitalization, Other)
  Sender: FDA-Public Use
  Company Number: US-SA-SAC20220118000830

PATIENT
  Age: 15 Year
  Sex: Male

DRUGS (5)
  1. ALPROLIX [Suspect]
     Active Substance: EFTRENONACOG ALFA
     Indication: Factor IX deficiency
     Dosage: 2096 IU
     Route: 042
  2. ALPROLIX [Suspect]
     Active Substance: EFTRENONACOG ALFA
     Indication: Prophylaxis
     Dosage: 5250 UNITS (4725-5775) SLOW IV PUSH EVERY MONDAY AND THURSDAY
     Route: 042
  3. ALPROLIX [Suspect]
     Active Substance: EFTRENONACOG ALFA
     Dosage: 10,500 UNITS (9450-11,550)
     Route: 042
  4. ALPROLIX [Suspect]
     Active Substance: EFTRENONACOG ALFA
     Dosage: 8854 U (STRENGTH: 4427U)
     Route: 042
     Dates: start: 202201
  5. ALPROLIX [Suspect]
     Active Substance: EFTRENONACOG ALFA
     Dosage: 1072 U (STRENGTH: 1072U)
     Route: 042
     Dates: start: 202201

REACTIONS (2)
  - Haemorrhage [Unknown]
  - Knee operation [Unknown]

NARRATIVE: CASE EVENT DATE: 20211216
